FAERS Safety Report 4664778-4 (Version None)
Quarter: 2005Q2

REPORT INFORMATION
  Report Type: 
  Country: None (occurrence: None)
  Receive Date: 20050518
  Receipt Date: 20050509
  Transmission Date: 20051028
  Serious: Yes (Disabling)
  Sender: FDA-Public Use
  Company Number: PHBS2005IT06702

PATIENT
  Age: 65 Year
  Sex: Female

DRUGS (4)
  1. ZOMETA [Suspect]
     Dosage: 4 MG, QMO
     Route: 042
     Dates: start: 20021201, end: 20040901
  2. CAPECITABINE [Concomitant]
     Dosage: 3000 MG/D
     Route: 048
  3. FULVESTRANT [Concomitant]
     Dosage: 1 MG/D
     Route: 042
  4. ARIMIDEX [Concomitant]
     Dosage: 1 MG/D
     Route: 048

REACTIONS (4)
  - GINGIVITIS [None]
  - PAIN IN JAW [None]
  - STOMATITIS [None]
  - TOOTH MALFORMATION [None]
